FAERS Safety Report 10563046 (Version 1)
Quarter: 2014Q4

REPORT INFORMATION
  Report Type: Spontaneous
  Country: FR (occurrence: FR)
  Receive Date: 20141104
  Receipt Date: 20141104
  Transmission Date: 20150529
  Serious: Yes (Hospitalization)
  Sender: FDA-Public Use
  Company Number: FR-PFIZER INC-2014301694

PATIENT
  Age: 7 Year
  Sex: Female
  Weight: 24.6 kg

DRUGS (4)
  1. CHILDRENS ADVIL [Suspect]
     Active Substance: IBUPROFEN
     Dosage: 1 DOSE-WEIGHT, 3X/DAY
     Route: 048
     Dates: start: 20140502, end: 20140505
  2. ZOPHREN [Concomitant]
     Active Substance: ONDANSETRON
     Dosage: UNK
     Route: 042
     Dates: start: 201405
  3. VOGALENE [Concomitant]
     Active Substance: METOPIMAZINE
     Dosage: UNK
     Dates: start: 20140506
  4. DOLIPRANE [Concomitant]
     Active Substance: ACETAMINOPHEN
     Dosage: UNK, 4 TIMES DAILY
     Dates: start: 20140503

REACTIONS (1)
  - Acute kidney injury [Recovered/Resolved]

NARRATIVE: CASE EVENT DATE: 20140507
